FAERS Safety Report 11301203 (Version 1)
Quarter: 2015Q3

REPORT INFORMATION
  Report Type: Spontaneous
  Country: US (occurrence: US)
  Receive Date: 20150722
  Receipt Date: 20150722
  Transmission Date: 20151125
  Serious: No
  Sender: FDA-Public Use
  Company Number: US-ELI_LILLY_AND_COMPANY-US201112002147

PATIENT
  Sex: Female

DRUGS (2)
  1. HUMATROPE [Suspect]
     Active Substance: SOMATROPIN
     Dosage: 2.2 MG, 6 DAYS A WEEK
  2. HUMATROPE [Suspect]
     Active Substance: SOMATROPIN
     Indication: DWARFISM
     Dosage: 1.8 MG, UNKNOWN
     Dates: start: 20110405

REACTIONS (4)
  - Headache [Unknown]
  - Vomiting [Unknown]
  - Nausea [Unknown]
  - Weight increased [Unknown]
